FAERS Safety Report 7896914-0 (Version None)
Quarter: 2011Q4

REPORT INFORMATION
  Report Type: 
  Country: None (occurrence: None)
  Receive Date: 20111107
  Receipt Date: 20111028
  Transmission Date: 20120403
  Serious: Yes (Hospitalization)
  Sender: FDA-Public Use
  Company Number: FR-BAYER-201024275GPV

PATIENT
  Age: 68 Year
  Sex: Male
  Weight: 48 kg

DRUGS (35)
  1. IRON PREPARATIONS [Concomitant]
     Indication: IRON DEFICIENCY ANAEMIA
     Dosage: 50 MG (DAILY DOSE), ,
     Dates: start: 20091101
  2. ATARAX [Concomitant]
     Indication: PROPHYLAXIS
     Dosage: 50 MG (DAILY DOSE), ,
     Dates: start: 20100105, end: 20100105
  3. MORPHINE SULFATE [Concomitant]
     Indication: THERAPEUTIC EMBOLISATION
     Dosage: 10 MG (DAILY DOSE), ,
     Dates: start: 20100105, end: 20100105
  4. MOTILIUM [Concomitant]
     Indication: THERAPEUTIC EMBOLISATION
     Dosage: 20 MG (DAILY DOSE), ,
     Dates: start: 20100105, end: 20100105
  5. POTASSIUM CHLORIDE [Concomitant]
     Indication: HYPOKALAEMIA
     Dosage: 1800 MG (DAILY DOSE), ,
     Dates: start: 20100415, end: 20100420
  6. SORAFENIB (RAF KINASE INHIBITOR) [Suspect]
     Indication: HEPATIC NEOPLASM MALIGNANT
     Dosage: 400 MG, BID
     Route: 048
     Dates: start: 20101229, end: 20110125
  7. DOXORUBICIN HCL [Suspect]
     Indication: HEPATIC NEOPLASM MALIGNANT
  8. DUPHALAC [Concomitant]
     Dosage: 10 G (DAILY DOSE), ,
     Dates: start: 20100404, end: 20100421
  9. ACETAMINOPHEN [Concomitant]
     Indication: INFECTION
     Dates: start: 20100109, end: 20100112
  10. SORAFENIB (RAF KINASE INHIBITOR) [Suspect]
     Dosage: 400 MG, QD
     Route: 048
     Dates: start: 20100208, end: 20100429
  11. ASPIRIN [Concomitant]
     Indication: VASCULAR GRAFT
     Dosage: 160 MG (DAILY DOSE), ,
     Dates: start: 20030101, end: 20091222
  12. COZAAR [Concomitant]
     Indication: HYPERTENSION
     Dosage: 100 MG (DAILY DOSE), ,
     Dates: start: 20030101
  13. ATARAX [Concomitant]
     Dosage: 50 MG (DAILY DOSE), ,
     Dates: start: 20100223, end: 20100223
  14. MORPHINE SULFATE [Concomitant]
     Dosage: 10 MG (DAILY DOSE), ,
     Dates: start: 20100223, end: 20100223
  15. KAYEXALATE [Concomitant]
     Dosage: SPOONS
     Dates: start: 20100408, end: 20100415
  16. NEXIUM [Concomitant]
     Indication: PREMEDICATION
     Dosage: 20 MG (DAILY DOSE), ,
     Dates: start: 20100407
  17. LANSOYL [Concomitant]
     Indication: CONSTIPATION PROPHYLAXIS
     Dosage: SPOONS
     Dates: start: 20100421
  18. POTASSIUM [Concomitant]
     Indication: HYPOKALAEMIA
     Dosage: 20 MMOL (DAILY DOSE), ,
     Dates: start: 20100306, end: 20100308
  19. ASPIRIN [Concomitant]
     Dosage: 150 MG (DAILY DOSE), ,
     Dates: start: 20100108
  20. LERCANIDIPINE [Concomitant]
     Indication: HYPERTENSION
     Dates: start: 20030101
  21. TRAMADOL HCL [Concomitant]
     Dates: start: 20100223, end: 20100228
  22. TRAMADOL HCL [Concomitant]
     Dosage: 200 MG (DAILY DOSE), ,
     Dates: start: 20100415
  23. KAYEXALATE [Concomitant]
     Indication: HYPERKALAEMIA
     Dosage: 30 G (DAILY DOSE), ,
     Dates: start: 20100118, end: 20100118
  24. VENOFER [Concomitant]
     Dosage: 300 MG (DAILY DOSE), ,
     Dates: start: 20100308, end: 20100308
  25. PREDNISOLONE [Concomitant]
     Indication: LYMPHANGIOSIS CARCINOMATOSA
     Dosage: 40 MG (DAILY DOSE), ,
     Dates: start: 20100423
  26. ATARAX [Concomitant]
     Indication: THERAPEUTIC EMBOLISATION
     Dosage: 50 MG (DAILY DOSE), ,
     Dates: start: 20100110, end: 20100402
  27. IMODIUM [Concomitant]
     Indication: DIARRHOEA
     Dosage: 4 MG (DAILY DOSE), ,
     Dates: start: 20100110, end: 20100110
  28. LASIX [Concomitant]
     Indication: HYPERTENSION
     Dosage: 20 MG (DAILY DOSE), ,
     Dates: start: 20100304, end: 20100304
  29. VENOFER [Concomitant]
     Indication: ANAEMIA
     Dosage: 300 MG (DAILY DOSE), ,
     Dates: start: 20100306, end: 20100306
  30. TRAMADOL HCL [Concomitant]
     Dosage: 50 MG (DAILY DOSE), ,
     Dates: start: 20100403, end: 20100421
  31. KAYEXALATE [Concomitant]
     Dosage: 30 G (DAILY DOSE), ,
     Dates: start: 20100222, end: 20100222
  32. ATARAX [Concomitant]
     Dosage: 75 MG (DAILY DOSE), ,
     Dates: start: 20100403
  33. TRAMADOL HCL [Concomitant]
     Indication: ABDOMINAL PAIN
     Dates: start: 20100106, end: 20100114
  34. AUGMENTIN [Concomitant]
     Indication: INFECTION
     Dosage: 3 G (DAILY DOSE), ,
     Dates: start: 20100109, end: 20100117
  35. ANTACIDS [Concomitant]
     Indication: DIARRHOEA
     Dates: start: 20100111, end: 20100222

REACTIONS (2)
  - CARDIAC FAILURE CONGESTIVE [None]
  - ESCHERICHIA INFECTION [None]
